FAERS Safety Report 7463056-8 (Version None)
Quarter: 2011Q2

REPORT INFORMATION
  Report Type: 
  Country: None (occurrence: None)
  Receive Date: 20110506
  Receipt Date: 20110421
  Transmission Date: 20111010
  Serious: Yes (Other)
  Sender: FDA-Public Use
  Company Number: US-BAYER-2010-001443

PATIENT
  Age: 24 Year
  Sex: Female
  Weight: 95 kg

DRUGS (2)
  1. YAZ [Suspect]
     Indication: CONTRACEPTION
     Dosage: UNK
     Dates: start: 20090101, end: 20090101
  2. NSAID'S [Concomitant]
     Indication: ANTIINFLAMMATORY THERAPY
     Dosage: UNK UNK, PRN

REACTIONS (3)
  - PAIN [None]
  - CHOLELITHIASIS [None]
  - INJURY [None]
